FAERS Safety Report 7034097-X (Version None)
Quarter: 2010Q4

REPORT INFORMATION
  Report Type: 
  Country: None (occurrence: None)
  Receive Date: 20101008
  Receipt Date: 20100930
  Transmission Date: 20110411
  Serious: Yes (Other)
  Sender: FDA-Public Use
  Company Number: US-US-EMD SERONO, INC.-231557J10USA

PATIENT
  Sex: Female
  Weight: 122 kg

DRUGS (11)
  1. REBIF [Suspect]
     Indication: RELAPSING-REMITTING MULTIPLE SCLEROSIS
     Route: 058
     Dates: start: 20090304, end: 20100609
  2. GLUCOPHAGE [Concomitant]
     Indication: TYPE 2 DIABETES MELLITUS
  3. GLIMEPIRIDE [Concomitant]
     Indication: TYPE 2 DIABETES MELLITUS
  4. LANTUS [Concomitant]
     Indication: TYPE 2 DIABETES MELLITUS
  5. LIPITOR [Concomitant]
     Indication: BLOOD TRIGLYCERIDES INCREASED
  6. NIACIN [Concomitant]
     Indication: BLOOD TRIGLYCERIDES INCREASED
  7. ZOLOFT [Concomitant]
     Indication: DEPRESSION
  8. XANAX [Concomitant]
     Indication: DEPRESSION
  9. TOPAMAX [Concomitant]
     Indication: MIGRAINE
  10. RESTORIL [Concomitant]
     Indication: INSOMNIA
  11. AMBIEN [Concomitant]
     Indication: INSOMNIA

REACTIONS (16)
  - AMNESIA [None]
  - ANGER [None]
  - ANKLE FRACTURE [None]
  - ARTHRALGIA [None]
  - BACK PAIN [None]
  - DEPRESSION [None]
  - FACE INJURY [None]
  - FALL [None]
  - HEAD INJURY [None]
  - HEPATIC ENZYME INCREASED [None]
  - INJECTION SITE REACTION [None]
  - INTENTIONAL OVERDOSE [None]
  - LOSS OF CONSCIOUSNESS [None]
  - SELF INJURIOUS BEHAVIOUR [None]
  - SUICIDAL IDEATION [None]
  - SUICIDE ATTEMPT [None]
